FAERS Safety Report 12217789 (Version 1)
Quarter: 2016Q1

REPORT INFORMATION
  Report Type: Spontaneous
  Country: DE (occurrence: DE)
  Receive Date: 20160329
  Receipt Date: 20160329
  Transmission Date: 20160526
  Serious: Yes (Other)
  Sender: FDA-Public Use
  Company Number: DE-ASTRAZENECA-2016SE30914

PATIENT
  Age: 30 Year
  Sex: Female

DRUGS (5)
  1. SEROQUEL [Suspect]
     Active Substance: QUETIAPINE FUMARATE
     Indication: DEPRESSION
     Route: 048
     Dates: start: 20150201, end: 20151114
  2. NORPROLAC [Concomitant]
     Active Substance: QUINAGOLIDE HYDROCHLORIDE
     Indication: INFERTILITY FEMALE
     Route: 048
     Dates: start: 20150201, end: 20150416
  3. CYTOTEC [Concomitant]
     Active Substance: MISOPROSTOL
     Indication: LABOUR INDUCTION
  4. SIOFOR [Concomitant]
     Active Substance: METFORMIN HYDROCHLORIDE
     Indication: POLYCYSTIC OVARIES
     Dosage: 1000-500-1000/ 2500 MG, DAILY
     Route: 048
     Dates: start: 20150201, end: 20150421
  5. FOLSAURE [Concomitant]
     Active Substance: FOLIC ACID
     Indication: PROPHYLAXIS OF NEURAL TUBE DEFECT
     Route: 048

REACTIONS (1)
  - Gestational diabetes [Recovered/Resolved]
